FAERS Safety Report 9559485 (Version 2)
Quarter: 2013Q3

REPORT INFORMATION
  Report Type: Spontaneous
  Country: JP (occurrence: JP)
  Receive Date: 20130927
  Receipt Date: 20130927
  Transmission Date: 20140515
  Serious: Yes (Other)
  Sender: FDA-Public Use
  Company Number: JP-JNJFOC-20130706952

PATIENT
  Age: 37 Year
  Sex: Female
  Weight: 68 kg

DRUGS (8)
  1. REMICADE [Suspect]
     Indication: CROHN^S DISEASE
     Route: 042
     Dates: start: 20090123, end: 20090313
  2. REMICADE [Suspect]
     Indication: CROHN^S DISEASE
     Dosage: FIRST DOSE
     Route: 042
     Dates: start: 20070119
  3. ENTERONON-R [Suspect]
     Indication: CROHN^S DISEASE
     Dosage: DOSE FOR TREATMENT WAS 1.5 G
     Route: 048
     Dates: start: 20070119
  4. ACINON [Suspect]
     Indication: CROHN^S DISEASE
     Dosage: DOSE FOR TREATMENT WAS 150 MG
     Route: 048
     Dates: start: 20070119, end: 20090123
  5. PENTASA [Suspect]
     Indication: CROHN^S DISEASE
     Dosage: DOSE FOR TREATMENT WAS 1500 MG
     Route: 048
     Dates: start: 20070119
  6. CINAL [Concomitant]
     Indication: CROHN^S DISEASE
     Dosage: DOSE FOR TREATMENT WAS 200 MG
     Route: 048
     Dates: start: 20070119, end: 20090220
  7. FOLIAMIN [Concomitant]
     Indication: PROPHYLAXIS
     Dosage: DOSE FOR TREATMENT WAS 200 MG
     Route: 048
     Dates: start: 20090601, end: 20090620
  8. FESIN [Concomitant]
     Indication: ANAEMIA
     Dosage: DOSE FOR TREATMENT WAS 200 MG
     Route: 042
     Dates: start: 20090123

REACTIONS (2)
  - Uterine haemorrhage [Recovered/Resolved]
  - Maternal exposure during pregnancy [Recovered/Resolved]
